FAERS Safety Report 25207844 (Version 3)
Quarter: 2025Q4

REPORT INFORMATION
  Report Type: Spontaneous
  Country: US (occurrence: US)
  Receive Date: 20250417
  Receipt Date: 20251013
  Transmission Date: 20260119
  Serious: Yes (Death, Other)
  Sender: PFIZER
  Company Number: US-PFIZER INC-PV202400136515

PATIENT
  Age: 70 Year
  Sex: Female

DRUGS (4)
  1. TUKYSA [Suspect]
     Active Substance: TUCATINIB
     Dosage: 2 TABLETS PO (PER ORAL) BID (TWO TIMES A DAY)
     Route: 048
     Dates: start: 202406
  2. ALOXI [Concomitant]
     Active Substance: PALONOSETRON HYDROCHLORIDE
     Dosage: UNK
  3. CINVANTI [Concomitant]
     Active Substance: APREPITANT
     Dosage: UNK
  4. ENHERTU [Concomitant]
     Active Substance: FAM-TRASTUZUMAB DERUXTECAN-NXKI
     Dosage: UNK

REACTIONS (5)
  - Death [Fatal]
  - Craniofacial fracture [Unknown]
  - Fall [Unknown]
  - Sinus headache [Unknown]
  - Off label use [Unknown]

NARRATIVE: CASE EVENT DATE: 20240601
